FAERS Safety Report 8452022-1 (Version None)
Quarter: 2012Q2

REPORT INFORMATION
  Report Type: 
  Country: None (occurrence: None)
  Receive Date: 20120620
  Receipt Date: 20120615
  Transmission Date: 20120825
  Serious: No
  Sender: FDA-Public Use
  Company Number: JP-PFIZER INC-2012043793

PATIENT
  Sex: Male
  Weight: 39 kg

DRUGS (1)
  1. NONACOG ALFA [Suspect]
     Indication: FACTOR IX DEFICIENCY
     Dosage: 1000 IU, WEEKLY
     Route: 042
     Dates: start: 20110202

REACTIONS (1)
  - RASH [None]
